FAERS Safety Report 5512163-5 (Version None)
Quarter: 2007Q4

REPORT INFORMATION
  Report Type: 
  Country: None (occurrence: None)
  Receive Date: 20071112
  Receipt Date: 20071101
  Transmission Date: 20080405
  Serious: Yes (Other)
  Sender: FDA-Public Use
  Company Number: US-SHR-US-2007-033986

PATIENT
  Age: 47 Year
  Sex: Male

DRUGS (11)
  1. GM-CSF (9874) [Suspect]
     Indication: CROHN'S DISEASE
     Dosage: 6 A?G/KG, 1X/DAY
     Route: 058
     Dates: start: 20040826, end: 20050322
  2. GM-CSF (9874) [Suspect]
     Dosage: 6 A?G/KG, 1X/DAY
     Route: 058
     Dates: start: 20050322, end: 20061120
  3. ANDROGEL [Concomitant]
     Dosage: 5 G, 1X/DAY
     Dates: start: 20020101
  4. OXYCONTIN [Concomitant]
     Dosage: 20 MG, AS REQ'D
     Dates: start: 20040101
  5. TYLENOL [Concomitant]
     Dosage: UNK, AS REQ'D
  6. LACTAID [Concomitant]
     Dosage: UNK, AS REQ'D
  7. FLAGYL [Concomitant]
     Indication: FISTULA
     Dosage: 500-1000MG
  8. TYLENOL [Concomitant]
     Indication: PREMEDICATION
     Dosage: PREMED PRIOR TO LEUKINE
     Dates: start: 20040826, end: 20050322
  9. TYLENOL [Concomitant]
     Dates: start: 20050322, end: 20061120
  10. BENADRYL ^ACHE^ [Concomitant]
     Indication: PREMEDICATION
     Dosage: PREMED PRIOR TO LEUKINE
     Dates: start: 20040826, end: 20050322
  11. BENADRYL ^ACHE^ [Concomitant]
     Dosage: UNK, UNK
     Dates: start: 20050322, end: 20061120

REACTIONS (1)
  - SIGNET-RING CELL CARCINOMA [None]
